FAERS Safety Report 8511897-8 (Version None)
Quarter: 2012Q3

REPORT INFORMATION
  Report Type: 
  Country: None (occurrence: None)
  Receive Date: 20120716
  Receipt Date: 20120712
  Transmission Date: 20120928
  Serious: Yes (Other)
  Sender: FDA-Public Use
  Company Number: US-PFIZER INC-2012169096

PATIENT
  Sex: Female

DRUGS (1)
  1. NIFEDIPINE [Suspect]
     Dosage: UNK
     Dates: start: 20120101

REACTIONS (5)
  - COGNITIVE DISORDER [None]
  - ASTHENIA [None]
  - INSOMNIA [None]
  - DEPRESSION [None]
  - PAIN [None]
